FAERS Safety Report 5003979-2 (Version None)
Quarter: 2006Q2

REPORT INFORMATION
  Report Type: 
  Country: None (occurrence: None)
  Receive Date: 20060517
  Receipt Date: 20060113
  Transmission Date: 20061013
  Serious: Yes (Other)
  Sender: FDA-Public Use
  Company Number: SE-AMGEN-UK166102

PATIENT
  Sex: Male

DRUGS (6)
  1. KINERET [Suspect]
     Indication: JUVENILE ARTHRITIS
     Route: 058
     Dates: start: 20050728, end: 20050814
  2. FOLACIN [Concomitant]
     Route: 048
  3. TACROLIMUS [Concomitant]
     Route: 065
  4. METHOTREXATE [Concomitant]
     Route: 065
  5. PREDNISOLONE [Concomitant]
     Route: 065
  6. CELECOXIB [Concomitant]
     Route: 048

REACTIONS (8)
  - ANGIONEUROTIC OEDEMA [None]
  - APPLICATION SITE REACTION [None]
  - CHEST DISCOMFORT [None]
  - DYSPNOEA [None]
  - HYPERSENSITIVITY [None]
  - LOCAL REACTION [None]
  - PANIC ATTACK [None]
  - URTICARIA [None]
